FAERS Safety Report 16534707 (Version 1)
Quarter: 2019Q3

REPORT INFORMATION
  Report Type: Spontaneous
  Country: US (occurrence: US)
  Receive Date: 20190705
  Receipt Date: 20190705
  Transmission Date: 20191004
  Serious: Yes (Other)
  Sender: FDA-Public Use
  Company Number: US-TEVA-2019-US-1072659

PATIENT
  Sex: Female

DRUGS (1)
  1. COPAXONE [Suspect]
     Active Substance: GLATIRAMER ACETATE
     Route: 065

REACTIONS (7)
  - Autoimmune thyroiditis [Unknown]
  - Stress [Unknown]
  - Thyroid hormones increased [Unknown]
  - Intervertebral disc protrusion [Not Recovered/Not Resolved]
  - Multiple sclerosis relapse [Unknown]
  - Fall [Not Recovered/Not Resolved]
  - Vitamin D decreased [Unknown]

NARRATIVE: CASE EVENT DATE: 201811
